FAERS Safety Report 10220271 (Version 3)
Quarter: 2014Q3

REPORT INFORMATION
  Report Type: Report from Study
  Country: IN (occurrence: IN)
  Receive Date: 20140606
  Receipt Date: 20140701
  Transmission Date: 20150326
  Serious: Yes (Death, Hospitalization, Other)
  Sender: FDA-Public Use
  Company Number: IN-ROCHE-1411961

PATIENT
  Age: 56 Year
  Sex: Female

DRUGS (2)
  1. EXXURA [Suspect]
     Active Substance: PEGINTERFERON ALFA-2A
     Indication: HEPATITIS C
     Route: 058
     Dates: start: 20140502
  2. COPEGUS [Suspect]
     Active Substance: RIBAVIRIN
     Indication: HEPATITIS C
     Route: 048
     Dates: start: 20140502

REACTIONS (6)
  - Dyspnoea [Not Recovered/Not Resolved]
  - Death [Fatal]
  - Platelet count decreased [Recovering/Resolving]
  - Burning sensation [Not Recovered/Not Resolved]
  - Abdominal distension [Not Recovered/Not Resolved]
  - Ascites [Recovering/Resolving]

NARRATIVE: CASE EVENT DATE: 20140607
